FAERS Safety Report 20720421 (Version 12)
Quarter: 2023Q4

REPORT INFORMATION
  Report Type: Spontaneous
  Country: US (occurrence: US)
  Receive Date: 20220418
  Receipt Date: 20231228
  Transmission Date: 20240110
  Serious: Yes (Other)
  Sender: FDA-Public Use
  Company Number: US-PFIZER INC-202200047634

PATIENT
  Age: 75 Year
  Sex: Female

DRUGS (6)
  1. IBRANCE [Suspect]
     Active Substance: PALBOCICLIB
     Indication: Breast cancer metastatic
     Dosage: 125 MG, CYCLIC (ONE PILL EVERY DAY FOR 3 WEEKS AND OFF THE FOURTH WEEK)
     Dates: start: 20211006
  2. IBRANCE [Suspect]
     Active Substance: PALBOCICLIB
     Indication: Osteoporosis
     Dosage: 125 MG
     Dates: start: 20220914
  3. IBRANCE [Suspect]
     Active Substance: PALBOCICLIB
     Indication: Breast cancer stage IV
     Dosage: 125 MG, CYCLIC (Q. DAY X 3 WEEKS; ONE WEEK OFF)
     Route: 048
  4. IBRANCE [Suspect]
     Active Substance: PALBOCICLIB
     Dosage: 100 MG, CYCLIC (TAKE 1 TABLET BY MOUTH ONCE DAILY FOR 21 DAYS, THEN 7 DAYS OFF)
     Route: 048
  5. PROLIA [Concomitant]
     Active Substance: DENOSUMAB
     Indication: Bone loss
     Dosage: UNK
  6. LETROZOLE [Concomitant]
     Active Substance: LETROZOLE
     Dosage: 2.5 MG, DAILY

REACTIONS (12)
  - Cellulitis [Unknown]
  - Full blood count decreased [Unknown]
  - Anaemia [Unknown]
  - Weight decreased [Recovering/Resolving]
  - Asthenia [Unknown]
  - Respiratory tract infection viral [Unknown]
  - Neuralgia [Unknown]
  - Respiratory disorder [Unknown]
  - Malaise [Unknown]
  - Anxiety [Unknown]
  - Tooth extraction [Unknown]
  - Endodontic procedure [Unknown]
